FAERS Safety Report 13346537 (Version 1)
Quarter: 2017Q1

REPORT INFORMATION
  Report Type: Report from Study
  Country: None (occurrence: US)
  Receive Date: 20170317
  Receipt Date: 20170317
  Transmission Date: 20170428
  Serious: Yes (Hospitalization, Other)
  Sender: FDA-Public Use
  Company Number: US-ABBVIE-17K-163-1904901-00

PATIENT
  Sex: Female

DRUGS (1)
  1. HUMIRA [Suspect]
     Active Substance: ADALIMUMAB
     Indication: CROHN^S DISEASE
     Route: 058
     Dates: end: 201609

REACTIONS (6)
  - Lupus-like syndrome [Unknown]
  - Pain in extremity [Unknown]
  - Peripheral swelling [Unknown]
  - Intestinal obstruction [Unknown]
  - Drug specific antibody present [Unknown]
  - Arthralgia [Unknown]
